FAERS Safety Report 26063666 (Version 1)
Quarter: 2025Q4

REPORT INFORMATION
  Report Type: Spontaneous
  Country: EU (occurrence: EU)
  Receive Date: 20251119
  Receipt Date: 20251119
  Transmission Date: 20260118
  Serious: Yes (Life-Threatening, Hospitalization, Other)
  Sender: AUROBINDO
  Company Number: EU-BFARM-25007910

PATIENT
  Age: 75 Year
  Sex: Male

DRUGS (2)
  1. PIRFENIDONE [Interacting]
     Active Substance: PIRFENIDONE
     Indication: Idiopathic pulmonary fibrosis
     Dosage: 267 MILLIGRAM, 3 TIMES A DAY (267MG 3X/D)
     Dates: start: 20251016, end: 20251023
  2. ORENCIA [Interacting]
     Active Substance: ABATACEPT
     Indication: Rheumatoid arthritis
     Dosage: 125 MILLIGRAM, EVERY WEEK (125MG 1X/WOCHE SEIT ANFANG DES JAHRES)
     Dates: start: 2025

REACTIONS (3)
  - Pancreatitis acute [Recovered/Resolved]
  - Sepsis [Recovered/Resolved]
  - Drug interaction [Unknown]

NARRATIVE: CASE EVENT DATE: 20251024
